FAERS Safety Report 18320920 (Version 1)
Quarter: 2020Q3

REPORT INFORMATION
  Report Type: Spontaneous
  Country: US (occurrence: US)
  Receive Date: 20200929
  Receipt Date: 20200929
  Transmission Date: 20201103
  Serious: No
  Sender: FDA-Public Use
  Company Number: US-BION-008270

PATIENT

DRUGS (1)
  1. IMODIUM A?D [Suspect]
     Active Substance: LOPERAMIDE HYDROCHLORIDE
     Indication: GASTROINTESTINAL SOUNDS ABNORMAL

REACTIONS (2)
  - Muscle spasms [Unknown]
  - Product use in unapproved indication [Not Recovered/Not Resolved]
